FAERS Safety Report 10707063 (Version 2)
Quarter: 2016Q3

REPORT INFORMATION
  Report Type: Report from Study
  Country: MX (occurrence: MX)
  Receive Date: 20150113
  Receipt Date: 20160926
  Transmission Date: 20161109
  Serious: Yes (Hospitalization)
  Sender: FDA-Public Use
  Company Number: PHHY2015MX003047

PATIENT
  Sex: Male

DRUGS (5)
  1. EXFORGE [Suspect]
     Active Substance: AMLODIPINE BESYLATE\VALSARTAN
     Indication: BLOOD PRESSURE INCREASED
     Dosage: 1 DF (AMLODIPINE 5 MG, VALSARTAN 160 MG), QD
     Route: 065
  2. HIGROTON [Concomitant]
     Active Substance: CHLORTHALIDONE
     Indication: PRODUCT USED FOR UNKNOWN INDICATION
     Dosage: 1 DF (50 MG), BID
     Route: 065
  3. EXFORGE [Suspect]
     Active Substance: AMLODIPINE BESYLATE\VALSARTAN
     Dosage: 1.5 DF (AMLODIPINE 5 MG, VALSARTAN 160 MG), BID (1 IN THE MORNING, 1/2 IN THE AFTERNOON)
     Route: 065
  4. TRIACOR [Concomitant]
     Indication: PRODUCT USED FOR UNKNOWN INDICATION
     Route: 065
  5. ASPIRIN PROTECT [Concomitant]
     Active Substance: ASPIRIN
     Indication: PRODUCT USED FOR UNKNOWN INDICATION
     Dosage: 1 OT, QD (AT NIGHT)
     Route: 065

REACTIONS (9)
  - Heart rate increased [Unknown]
  - Drug prescribing error [Not Recovered/Not Resolved]
  - Cardiomegaly [Unknown]
  - Weight decreased [Unknown]
  - Wrong technique in product usage process [Not Recovered/Not Resolved]
  - Dysphonia [Unknown]
  - Skin atrophy [Unknown]
  - Blood pressure increased [Unknown]
  - Asthenia [Unknown]
